FAERS Safety Report 4738643-8 (Version None)
Quarter: 2005Q3

REPORT INFORMATION
  Report Type: 
  Country: None (occurrence: None)
  Receive Date: 20050803
  Receipt Date: 20050722
  Transmission Date: 20060218
  Serious: Yes (Other)
  Sender: FDA-Public Use
  Company Number: 2005106592

PATIENT
  Age: 56 Year
  Sex: Female

DRUGS (1)
  1. CARDURA XL [Suspect]
     Indication: ILL-DEFINED DISORDER
     Dosage: 4 + 8 MG (4 MG), 1 IN 24 HR), ORAL - SEE IMAGE
     Route: 048

REACTIONS (2)
  - DIABETES MELLITUS [None]
  - LIBIDO DECREASED [None]
